FAERS Safety Report 25338279 (Version 3)
Quarter: 2025Q3

REPORT INFORMATION
  Report Type: Spontaneous
  Country: US (occurrence: US)
  Receive Date: 20250520
  Receipt Date: 20250810
  Transmission Date: 20251020
  Serious: No
  Sender: ALEXION PHARMACEUTICALS
  Company Number: US-AstraZeneca-CH-00873167A

PATIENT
  Sex: Female

DRUGS (6)
  1. PULMICORT TURBUHALER [Suspect]
     Active Substance: BUDESONIDE
     Route: 065
  2. SYMBICORT [Suspect]
     Active Substance: BUDESONIDE\FORMOTEROL FUMARATE DIHYDRATE
     Route: 065
  3. DALIRESP [Suspect]
     Active Substance: ROFLUMILAST
     Route: 065
  4. BENADRYL [Concomitant]
     Active Substance: DIPHENHYDRAMINE HYDROCHLORIDE
     Route: 065
  5. BENZONATATE [Concomitant]
     Active Substance: BENZONATATE
     Route: 065
  6. NUCALA [Concomitant]
     Active Substance: MEPOLIZUMAB
     Route: 065

REACTIONS (10)
  - Dyspnoea [Unknown]
  - Cough [Unknown]
  - Dust allergy [Unknown]
  - No adverse event [Unknown]
  - Dyspnoea [Unknown]
  - Therapy change [Unknown]
  - Paranoia [Unknown]
  - Insomnia [Unknown]
  - Illness [Unknown]
  - Product dose omission issue [Unknown]
